FAERS Safety Report 8590264-5 (Version None)
Quarter: 2012Q3

REPORT INFORMATION
  Report Type: 
  Country: None (occurrence: None)
  Receive Date: 20120813
  Receipt Date: 20120808
  Transmission Date: 20120928
  Serious: Yes (Life-Threatening, Hospitalization, Other)
  Sender: FDA-Public Use
  Company Number: US-GLAXOSMITHKLINE-A0972380A

PATIENT
  Age: 44 Year
  Sex: Female
  Weight: 70.5 kg

DRUGS (2)
  1. REVATIO [Concomitant]
     Dosage: 20MG THREE TIMES PER DAY
     Route: 048
     Dates: start: 20111201
  2. FLOLAN [Suspect]
     Indication: PULMONARY ARTERIAL HYPERTENSION
     Dosage: 34NGKM UNKNOWN
     Route: 042
     Dates: start: 20011030

REACTIONS (1)
  - PNEUMONIA [None]
